FAERS Safety Report 8263042-4 (Version None)
Quarter: 2012Q1

REPORT INFORMATION
  Report Type: 
  Country: None (occurrence: None)
  Receive Date: 20120327
  Receipt Date: 20090206
  Transmission Date: 20120608
  Serious: Yes (Other)
  Sender: FDA-Public Use
  Company Number: PHEH2009US01570

PATIENT
  Sex: Female

DRUGS (5)
  1. TRAZODONE HCL [Suspect]
     Indication: BIPOLAR DISORDER
     Dosage: 150 MG,
  2. CLONAZEPAM [Suspect]
     Indication: BIPOLAR DISORDER
  3. GEODON [Suspect]
     Indication: BIPOLAR DISORDER
  4. GLEEVEC [Suspect]
     Dosage: 400
  5. BUPROPION HCL [Suspect]
     Indication: BIPOLAR DISORDER

REACTIONS (4)
  - CHILLS [None]
  - LETHARGY [None]
  - DRUG INTERACTION [None]
  - DISORIENTATION [None]
